FAERS Safety Report 5556109-2 (Version None)
Quarter: 2007Q4

REPORT INFORMATION
  Report Type: 
  Country: None (occurrence: None)
  Receive Date: 20071130
  Receipt Date: 20070817
  Transmission Date: 20080405
  Serious: No
  Sender: FDA-Public Use
  Company Number: 2006PV011924

PATIENT
  Age: 62 Year
  Sex: Female
  Weight: 73 kg

DRUGS (8)
  1. EXENATIDE(EXENATIDE) PEN,DISPOSABLE [Suspect]
     Indication: DIABETES MELLITUS
     Dosage: 10 UG, EACH MORNING, SUBCUTANEOUS ; 5 UG, 2/D, SUBCUTANEOUS ; 5 UG, 2/D, SUBCUTANEOUS
     Route: 058
     Dates: start: 20060301, end: 20060101
  2. EXENATIDE(EXENATIDE) PEN,DISPOSABLE [Suspect]
     Indication: DIABETES MELLITUS
     Dosage: 10 UG, EACH MORNING, SUBCUTANEOUS ; 5 UG, 2/D, SUBCUTANEOUS ; 5 UG, 2/D, SUBCUTANEOUS
     Route: 058
     Dates: start: 20060201, end: 20060301
  3. EXENATIDE(EXENATIDE) PEN,DISPOSABLE [Suspect]
     Indication: DIABETES MELLITUS
     Dosage: 10 UG, EACH MORNING, SUBCUTANEOUS ; 5 UG, 2/D, SUBCUTANEOUS ; 5 UG, 2/D, SUBCUTANEOUS
     Route: 058
     Dates: start: 20060201, end: 20060610
  4. EXENATIDE(EXENATIDE) PEN,DISPOSABLE [Suspect]
     Dosage: 10 UG, 2/D, SUBCUTANEOUS
     Route: 058
     Dates: start: 20060201
  5. EXENATIDE(EXENATIDE) PEN,DISPOSABLE [Suspect]
     Dosage: 10 UG, 2/D, SUBCUTANEOUS
     Route: 058
     Dates: start: 20060610
  6. EXENATIDE UNK STRENGTH PEN, DISPOSABLE DEVICE (EXENATIDE PEN (UNKNOWN [Concomitant]
  7. GLUCOVANCE TABLET [Concomitant]
  8. HUMALOG [Concomitant]

REACTIONS (8)
  - BLOOD GLUCOSE DECREASED [None]
  - BLOOD GLUCOSE INCREASED [None]
  - DECREASED APPETITE [None]
  - EARLY SATIETY [None]
  - ENERGY INCREASED [None]
  - HYPOGLYCAEMIA [None]
  - TREMOR [None]
  - WEIGHT DECREASED [None]
